FAERS Safety Report 8007462-1 (Version None)
Quarter: 2011Q4

REPORT INFORMATION
  Report Type: 
  Country: None (occurrence: None)
  Receive Date: 20111222
  Receipt Date: 20111222
  Transmission Date: 20120403
  Serious: Yes (Hospitalization)
  Sender: FDA-Public Use
  Company Number: None

PATIENT
  Age: 72 Year
  Sex: Male
  Weight: 73.6 kg

DRUGS (1)
  1. WARFARIN SODIUM [Suspect]
     Indication: DEEP VEIN THROMBOSIS
     Dosage: 7.5 MG PM PO
     Route: 048
     Dates: start: 20110324, end: 20110408

REACTIONS (6)
  - ARTHRALGIA [None]
  - JOINT SWELLING [None]
  - HAEMATURIA [None]
  - FALL [None]
  - HAEMATOMA [None]
  - HAEMARTHROSIS [None]
